FAERS Safety Report 7247736-5 (Version None)
Quarter: 2011Q1

REPORT INFORMATION
  Report Type: 
  Country: None (occurrence: None)
  Receive Date: 20110127
  Receipt Date: 20110114
  Transmission Date: 20110831
  Serious: Yes (Other)
  Sender: FDA-Public Use
  Company Number: BE-ELI_LILLY_AND_COMPANY-BE201101004000

PATIENT
  Age: 34 Year
  Sex: Male

DRUGS (5)
  1. ZYPREXA [Suspect]
     Indication: SCHIZOPHRENIA
     Dosage: 20 MG, DAILY (1/D)
  2. ZYPREXA [Suspect]
     Dosage: 10 MG, DAILY (1/D)
  3. ZYPADHERA [Suspect]
     Indication: SCHIZOPHRENIA
     Dosage: 300 MG, EVERY TWO WEEKS
     Route: 030
     Dates: start: 20101227
  4. ZYPREXA [Suspect]
     Dosage: 20 MG, DAILY (1/D)
  5. ZYPREXA [Suspect]
     Dosage: 5 MG, DAILY (1/D)
     Dates: start: 20110110

REACTIONS (2)
  - PSYCHOTIC DISORDER [None]
  - OVERDOSE [None]
